FAERS Safety Report 25496980 (Version 2)
Quarter: 2025Q3

REPORT INFORMATION
  Report Type: Report from Study
  Country: US (occurrence: US)
  Receive Date: 20250701
  Receipt Date: 20250709
  Transmission Date: 20251020
  Serious: Yes (Other)
  Sender: DECIPHERA PHARMACEUTICALS
  Company Number: US-DECIPHERA PHARMACEUTICALS LLC-2025US000750

PATIENT
  Age: 69 Year
  Sex: Female

DRUGS (1)
  1. QINLOCK [Suspect]
     Active Substance: RIPRETINIB
     Indication: Gastrointestinal stromal tumour
     Dosage: 150 MILLIGRAM, QD
     Route: 048
     Dates: start: 20250305

REACTIONS (5)
  - Malignant neoplasm progression [Unknown]
  - Neoplasm malignant [Unknown]
  - Sleep disorder [Unknown]
  - Abnormal dreams [Unknown]
  - Constipation [Unknown]

NARRATIVE: CASE EVENT DATE: 20250101
